FAERS Safety Report 20940270 (Version 1)
Quarter: 2022Q2

REPORT INFORMATION
  Report Type: Spontaneous
  Country: US (occurrence: US)
  Receive Date: 20220609
  Receipt Date: 20220609
  Transmission Date: 20220721
  Serious: No
  Sender: FDA-Public Use
  Company Number: US-PFIZER INC-202200804456

PATIENT
  Age: 72 Year
  Sex: Female
  Weight: 62.6 kg

DRUGS (2)
  1. PAXLOVID [Suspect]
     Active Substance: NIRMATRELVIR\RITONAVIR
     Indication: COVID-19 treatment
     Dosage: [PF-07321332 300 MG]/[RITONAVIR 100 MG]; 2X/DAY (IN THE MORNING AND AT NIGHT) FOR 5 DAYS
     Dates: start: 20220606
  2. IBUPROFEN [Concomitant]
     Active Substance: IBUPROFEN
     Indication: Spinal disorder
     Dosage: 200 MG, 1X/DAY

REACTIONS (7)
  - Dysgeusia [Not Recovered/Not Resolved]
  - Tongue thrust [Not Recovered/Not Resolved]
  - Tongue disorder [Not Recovered/Not Resolved]
  - Abdominal distension [Not Recovered/Not Resolved]
  - Nasopharyngitis [Unknown]
  - Chills [Unknown]
  - Nausea [Unknown]

NARRATIVE: CASE EVENT DATE: 20220606
